FAERS Safety Report 15894299 (Version 1)
Quarter: 2019Q1

REPORT INFORMATION
  Report Type: Spontaneous
  Country: US (occurrence: US)
  Receive Date: 20190109
  Receipt Date: 20190109
  Transmission Date: 20190417
  Serious: Yes (Other)
  Sender: FDA-Public Use
  Company Number: None

PATIENT
  Age: 35 Month
  Sex: Male
  Weight: 15 kg

DRUGS (1)
  1. CLOBAZAM 2.5MG.ML ORAL SUSPENSION [Suspect]
     Active Substance: CLOBAZAM
     Indication: EPILEPSY
     Dosage: 10 MG (4 ML) BID ORAL
     Route: 048
     Dates: start: 20181120

REACTIONS (3)
  - Condition aggravated [None]
  - Product substitution issue [None]
  - Seizure [None]
